FAERS Safety Report 17586320 (Version 3)
Quarter: 2020Q3

REPORT INFORMATION
  Report Type: Spontaneous
  Country: US (occurrence: US)
  Receive Date: 20200326
  Receipt Date: 20200819
  Transmission Date: 20201102
  Serious: Yes (Other)
  Sender: FDA-Public Use
  Company Number: US-PFIZER INC-2020126513

PATIENT
  Age: 57 Year
  Sex: Male

DRUGS (5)
  1. BOSULIF [Suspect]
     Active Substance: BOSUTINIB MONOHYDRATE
     Indication: CHRONIC MYELOID LEUKAEMIA
     Dosage: UNK
  2. GLEEVEC [Suspect]
     Active Substance: IMATINIB MESYLATE
     Dosage: UNK
  3. SPRYCEL [Suspect]
     Active Substance: DASATINIB
     Dosage: UNK
  4. TASIGNA [Suspect]
     Active Substance: NILOTINIB
     Dosage: UNK
  5. ICLUSIG [Suspect]
     Active Substance: PONATINIB
     Dosage: UNK

REACTIONS (15)
  - Depression [Unknown]
  - Blood pressure increased [Unknown]
  - Gastrointestinal disorder [Unknown]
  - Pancreatitis [Unknown]
  - Electrocardiogram abnormal [Unknown]
  - Intentional dose omission [Unknown]
  - Gout [Unknown]
  - Skin exfoliation [Unknown]
  - Bone pain [Unknown]
  - Stress [Unknown]
  - Neuropathy peripheral [Unknown]
  - Candida infection [Unknown]
  - Face crushing [Unknown]
  - Myalgia [Unknown]
  - Tumour marker increased [Unknown]
